FAERS Safety Report 5888408-9 (Version None)
Quarter: 2008Q3

REPORT INFORMATION
  Report Type: 
  Country: None (occurrence: None)
  Receive Date: 20080916
  Receipt Date: 20080916
  Transmission Date: 20090109
  Serious: Yes (Other)
  Sender: FDA-Public Use
  Company Number: None

PATIENT
  Age: 41 Year
  Sex: Female
  Weight: 71.6683 kg

DRUGS (1)
  1. BUDEPROPRION 150 MG RITE AID [Suspect]
     Indication: DEPRESSION
     Dates: start: 20080904, end: 20080915

REACTIONS (5)
  - DEPRESSION [None]
  - FEELING JITTERY [None]
  - HEADACHE [None]
  - STOMACH DISCOMFORT [None]
  - THERAPEUTIC RESPONSE UNEXPECTED WITH DRUG SUBSTITUTION [None]
